FAERS Safety Report 11549631 (Version 1)
Quarter: 2015Q3

REPORT INFORMATION
  Report Type: Spontaneous
  Country: BR (occurrence: BR)
  Receive Date: 20150924
  Receipt Date: 20150924
  Transmission Date: 20151125
  Serious: Yes (Hospitalization, Other)
  Sender: FDA-Public Use
  Company Number: BR-PFIZER INC-2015222654

PATIENT
  Age: 40 Year
  Sex: Male

DRUGS (7)
  1. LEXAPRO [Concomitant]
     Active Substance: ESCITALOPRAM OXALATE
     Dosage: UNK
     Dates: start: 201508
  2. CELEBRA [Suspect]
     Active Substance: CELECOXIB
     Indication: MUSCULOSKELETAL PAIN
  3. CELEBRA [Suspect]
     Active Substance: CELECOXIB
     Indication: PSORIATIC ARTHROPATHY
  4. RIVOTRIL [Concomitant]
     Active Substance: CLONAZEPAM
     Dosage: UNK
     Dates: start: 201508
  5. CELEBRA [Suspect]
     Active Substance: CELECOXIB
     Indication: ARTHRALGIA
     Dosage: 200 MG, DAILY
     Dates: start: 201507
  6. CELEBRA [Suspect]
     Active Substance: CELECOXIB
     Indication: PELVIC PAIN
  7. PREGABALIN. [Concomitant]
     Active Substance: PREGABALIN
     Indication: PAIN
     Dosage: UNK
     Dates: end: 201507

REACTIONS (9)
  - Dry eye [Not Recovered/Not Resolved]
  - Panic disorder [Not Recovered/Not Resolved]
  - Sjogren^s syndrome [Unknown]
  - Condition aggravated [Not Recovered/Not Resolved]
  - Dry mouth [Not Recovered/Not Resolved]
  - Hypoglycaemia [Recovered/Resolved]
  - Infarction [Unknown]
  - Stress [Unknown]
  - Anxiety [Unknown]

NARRATIVE: CASE EVENT DATE: 2015
